FAERS Safety Report 15119793 (Version 2)
Quarter: 2018Q4

REPORT INFORMATION
  Report Type: Report from Study
  Country: None (occurrence: US)
  Receive Date: 20180709
  Receipt Date: 20181211
  Transmission Date: 20190204
  Serious: Yes (Other)
  Sender: FDA-Public Use
  Company Number: US-ABBVIE-18K-163-2412095-00

PATIENT
  Age: 37 Year
  Sex: Female

DRUGS (1)
  1. HUMIRA [Suspect]
     Active Substance: ADALIMUMAB
     Indication: RHEUMATOID ARTHRITIS
     Route: 058

REACTIONS (10)
  - Joint range of motion decreased [Unknown]
  - Arthralgia [Unknown]
  - Chest pain [Unknown]
  - Joint swelling [Unknown]
  - Rheumatoid arthritis [Unknown]
  - Thrombosis [Unknown]
  - Drug ineffective [Unknown]
  - Rash [Unknown]
  - Osteoarthritis [Unknown]
  - Impetigo [Unknown]

NARRATIVE: CASE EVENT DATE: 2013
